FAERS Safety Report 5705021-4 (Version None)
Quarter: 2008Q2

REPORT INFORMATION
  Report Type: 
  Country: None (occurrence: None)
  Receive Date: 20080414
  Receipt Date: 20080404
  Transmission Date: 20081010
  Serious: Yes (Hospitalization)
  Sender: FDA-Public Use
  Company Number: US-GILEAD-2008-0015983

PATIENT
  Sex: Female
  Weight: 158.9 kg

DRUGS (24)
  1. TRUVADA [Suspect]
     Indication: HIV INFECTION
     Dates: start: 20070607, end: 20080320
  2. TRUVADA [Suspect]
     Dates: start: 20080322
  3. TMC114 [Suspect]
     Indication: HIV INFECTION
     Route: 048
     Dates: start: 20070607, end: 20080320
  4. TMC114 [Suspect]
     Route: 048
     Dates: start: 20080322
  5. TMC125 [Suspect]
     Indication: HIV INFECTION
     Route: 048
     Dates: start: 20070607, end: 20080320
  6. TMC125 [Suspect]
     Route: 048
     Dates: start: 20080322
  7. NORVIR [Suspect]
     Indication: HIV INFECTION
     Dates: end: 20080320
  8. NORVIR [Suspect]
     Dates: start: 20080322
  9. PREZISTA [Suspect]
     Indication: HIV INFECTION
     Dates: end: 20080320
  10. PREZISTA [Suspect]
     Dates: start: 20080322
  11. TRAZODONE HCL [Concomitant]
     Indication: INSOMNIA
     Route: 048
     Dates: start: 20000701, end: 20080320
  12. TRAZODONE HCL [Concomitant]
     Route: 048
     Dates: start: 20080322
  13. AZITHROMYCIN [Concomitant]
     Indication: ANTIBIOTIC PROPHYLAXIS
     Route: 048
     Dates: start: 20080322
  14. AZITHROMYCIN [Concomitant]
     Route: 048
     Dates: start: 20070101, end: 20080320
  15. BACTRIM DS [Concomitant]
     Indication: ANTIFUNGAL PROPHYLAXIS
     Route: 048
     Dates: start: 20080322
  16. BACTRIM DS [Concomitant]
     Route: 048
     Dates: start: 20070101, end: 20080320
  17. ADVAIR HFA [Concomitant]
     Indication: CHRONIC OBSTRUCTIVE PULMONARY DISEASE
     Route: 055
     Dates: end: 20080320
  18. ADVAIR HFA [Concomitant]
     Route: 055
     Dates: start: 20080322
  19. ALBUTEROL [Concomitant]
     Indication: CHRONIC OBSTRUCTIVE PULMONARY DISEASE
     Route: 055
     Dates: end: 20080322
  20. ALBUTEROL [Concomitant]
     Route: 055
     Dates: start: 20080322
  21. VANCOMYCIN [Concomitant]
     Indication: CELLULITIS
     Dates: start: 20080312, end: 20080314
  22. CLINDAMYCIN HCL [Concomitant]
     Indication: CELLULITIS
     Route: 048
     Dates: start: 20080312, end: 20080320
  23. VALCYTE [Concomitant]
     Indication: CYTOMEGALOVIRUS INFECTION
     Route: 048
  24. FLUCONAZOLE [Concomitant]
     Indication: ORAL CANDIDIASIS
     Route: 048

REACTIONS (2)
  - DEHYDRATION [None]
  - VOMITING [None]
